FAERS Safety Report 20156213 (Version 2)
Quarter: 2022Q2

REPORT INFORMATION
  Report Type: Spontaneous
  Country: US (occurrence: US)
  Receive Date: 20211207
  Receipt Date: 20220421
  Transmission Date: 20220720
  Serious: No
  Sender: FDA-Public Use
  Company Number: US-PFIZER INC-202101178529

PATIENT
  Age: 50 Year

DRUGS (1)
  1. XELJANZ XR [Suspect]
     Active Substance: TOFACITINIB CITRATE
     Dosage: 11 MG, 1X/DAY (11MG TABLET TAKEN ONCE DAILY)

REACTIONS (1)
  - Hepatic enzyme increased [Unknown]
